FAERS Safety Report 18548813 (Version 1)
Quarter: 2020Q4

REPORT INFORMATION
  Report Type: Report from Study
  Country: None (occurrence: US)
  Receive Date: 20201126
  Receipt Date: 20201126
  Transmission Date: 20210114
  Serious: Yes (Hospitalization)
  Sender: FDA-Public Use
  Company Number: US-ABBVIE-20K-163-3414737-00

PATIENT
  Sex: Female

DRUGS (4)
  1. HUMIRA [Suspect]
     Active Substance: ADALIMUMAB
     Dosage: CITRATE FREE
     Route: 058
  2. HUMIRA [Suspect]
     Active Substance: ADALIMUMAB
     Indication: PSORIASIS
     Route: 058
  3. HUMIRA [Suspect]
     Active Substance: ADALIMUMAB
     Dosage: INCREASED DOSE
     Route: 058
  4. HUMIRA [Suspect]
     Active Substance: ADALIMUMAB
     Route: 058

REACTIONS (22)
  - Drug specific antibody present [Unknown]
  - Fatigue [Unknown]
  - Skin laceration [Unknown]
  - Dyspnoea [Unknown]
  - Therapeutic product effect decreased [Unknown]
  - Alopecia [Unknown]
  - Dizziness [Unknown]
  - Rash papular [Unknown]
  - Chest discomfort [Unknown]
  - Mobility decreased [Unknown]
  - Kidney infection [Unknown]
  - Nausea [Unknown]
  - Rash macular [Unknown]
  - Feeling abnormal [Unknown]
  - Thyroid disorder [Unknown]
  - Hypoaesthesia [Not Recovered/Not Resolved]
  - Panic attack [Unknown]
  - Ear infection [Recovered/Resolved]
  - Psoriasis [Unknown]
  - Liver disorder [Unknown]
  - Skin plaque [Not Recovered/Not Resolved]
  - Infection [Unknown]

NARRATIVE: CASE EVENT DATE: 2019
